FAERS Safety Report 8772273 (Version 5)
Quarter: 2012Q4

REPORT INFORMATION
  Report Type: 
  Country: JP (occurrence: JP)
  Receive Date: 20120905
  Receipt Date: 20121015
  Transmission Date: 20130627
  Serious: Yes (Hospitalization, Other)
  Sender: FDA-Public Use
  Company Number: JP-JNJFOC-20120900209

PATIENT
  Age: 75 Year
  Sex: Female

DRUGS (3)
  1. TRAMCET [Suspect]
     Indication: PAIN
     Dosage: 1 per day
     Route: 048
     Dates: start: 20120901
  2. TRAMCET [Suspect]
     Indication: PAIN
     Dosage: 1 per day
     Route: 048
     Dates: start: 20120822, end: 20120822
  3. INSULIN [Suspect]
     Indication: TYPE 2 DIABETES MELLITUS
     Route: 065

REACTIONS (3)
  - Diabetes mellitus inadequate control [Recovered/Resolved]
  - Gastroenteritis [Recovered/Resolved]
  - Malaise [Unknown]
